FAERS Safety Report 9407158 (Version 1)
Quarter: 2013Q3

REPORT INFORMATION
  Report Type: Spontaneous
  Country: GB (occurrence: GB)
  Receive Date: 20130718
  Receipt Date: 20130718
  Transmission Date: 20140515
  Serious: Yes (Life-Threatening, Other)
  Sender: FDA-Public Use
  Company Number: PHHY2013GB075572

PATIENT
  Age: 95 Year
  Sex: Male
  Weight: 55.65 kg

DRUGS (10)
  1. CIPROFLOXACIN [Suspect]
     Indication: LOWER RESPIRATORY TRACT INFECTION
     Dosage: 500 MG, BID
     Route: 048
     Dates: start: 20121217
  2. WARFARIN [Interacting]
     Indication: ATRIAL FIBRILLATION
     Route: 048
  3. DIGOXIN [Concomitant]
     Dosage: 125 UG, QD
  4. CARBOCISTEINE [Concomitant]
  5. FUROSEMIDE [Concomitant]
     Dosage: 40 MG, QD (ONCE IN THE MORNING)
  6. LANSOPRAZOLE [Concomitant]
     Dosage: 30 MG, BID
  7. FERROUS FUMARATE [Concomitant]
  8. SALBUTAMOL [Concomitant]
  9. IPRATROPIUM [Concomitant]
  10. FLUTICASONE [Concomitant]

REACTIONS (5)
  - Haemoptysis [Unknown]
  - International normalised ratio increased [Recovered/Resolved]
  - Dyspnoea [Unknown]
  - Pneumonia [Unknown]
  - Drug interaction [Unknown]
